FAERS Safety Report 4903110-5 (Version None)
Quarter: 2006Q1

REPORT INFORMATION
  Report Type: 
  Country: None (occurrence: None)
  Receive Date: 20060207
  Receipt Date: 20051130
  Transmission Date: 20060701
  Serious: Yes (Other)
  Sender: FDA-Public Use
  Company Number: US-ROCHE-426947

PATIENT
  Age: 51 Year
  Sex: Female
  Weight: 90.7 kg

DRUGS (6)
  1. PEGASYS [Suspect]
     Route: 058
     Dates: start: 20050412
  2. COPEGUS [Suspect]
     Route: 048
     Dates: start: 20050412
  3. ZOLOFT [Concomitant]
     Indication: PROPHYLAXIS
     Dosage: AT AN UNKNOWN DATE, THE DOSING REGIMEN WAS CHANGED TO ONCE DAILY DOSING (AT BEDTIME).
     Route: 048
     Dates: start: 20050310
  4. PREVACID [Concomitant]
     Route: 048
  5. SALIGEN [Concomitant]
     Route: 048
  6. RESTORIL [Concomitant]
     Dosage: AT BEDTIME.
     Route: 048
     Dates: start: 20051003

REACTIONS (29)
  - ALOPECIA [None]
  - AMNESIA [None]
  - APATHY [None]
  - ARTERIAL DISORDER [None]
  - CAROTID PULSE ABNORMAL [None]
  - COUGH [None]
  - DRY MOUTH [None]
  - DRY SKIN [None]
  - DYSGEUSIA [None]
  - EAR PAIN [None]
  - FATIGUE [None]
  - HEADACHE [None]
  - INFLUENZA LIKE ILLNESS [None]
  - INJECTION SITE REACTION [None]
  - INSOMNIA [None]
  - INTERVERTEBRAL DISC PROTRUSION [None]
  - LYMPHADENOPATHY [None]
  - MEMORY IMPAIRMENT [None]
  - MUSCULOSKELETAL STIFFNESS [None]
  - MYALGIA [None]
  - NAUSEA [None]
  - NECK PAIN [None]
  - PRODUCTIVE COUGH [None]
  - SALIVARY DUCT OBSTRUCTION [None]
  - SKIN DISCOLOURATION [None]
  - TINNITUS [None]
  - TREMOR [None]
  - URTICARIA [None]
  - WEIGHT DECREASED [None]
